APPROVED DRUG PRODUCT: CEFOBID IN PLASTIC CONTAINER
Active Ingredient: CEFOPERAZONE SODIUM
Strength: EQ 20MG BASE/ML
Dosage Form/Route: INJECTABLE;INJECTION
Application: N050613 | Product #002
Applicant: PFIZER LABORATORIES DIV PFIZER INC
Approved: Jul 31, 1987 | RLD: No | RS: No | Type: DISCN